FAERS Safety Report 8905865 (Version 1)
Quarter: 2012Q4

REPORT INFORMATION
  Report Type: 
  Country: FR (occurrence: FR)
  Receive Date: 20121109
  Receipt Date: 20121109
  Transmission Date: 20130627
  Serious: Yes (Hospitalization)
  Sender: FDA-Public Use
  Company Number: FR-SANOFI-AVENTIS-2012SA080504

PATIENT
  Age: 93 Year
  Sex: Female

DRUGS (13)
  1. LASILIX [Suspect]
     Indication: HYPERTENSION ARTERIAL
     Route: 048
  2. LASILIX [Suspect]
     Indication: HYPERTENSION ARTERIAL
     Route: 048
     Dates: start: 20120719, end: 20120725
  3. LASILIX [Suspect]
     Indication: HYPERTENSION ARTERIAL
     Route: 048
     Dates: start: 20120801
  4. LASILIX [Suspect]
     Indication: HYPERTENSION ARTERIAL
     Route: 048
     Dates: start: 20120802
  5. KALEORID [Suspect]
     Indication: DRUG USE FOR UNKNOWN INDICATION
     Route: 048
     Dates: end: 20120725
  6. KARDEGIC [Concomitant]
  7. INEXIUM [Concomitant]
  8. SECTRAL [Concomitant]
  9. ROSUVASTATIN [Concomitant]
  10. CANDESARTAN [Concomitant]
  11. AMLOR [Concomitant]
  12. DISCOTRINE [Concomitant]
  13. FORLAX [Concomitant]

REACTIONS (2)
  - Hyperkalaemia [Recovered/Resolved]
  - Hyponatraemia [Recovered/Resolved]
